FAERS Safety Report 6232180-X (Version None)
Quarter: 2009Q2

REPORT INFORMATION
  Report Type: 
  Country: None (occurrence: None)
  Receive Date: 20090617
  Receipt Date: 20090611
  Transmission Date: 20091009
  Serious: Yes (Other)
  Sender: FDA-Public Use
  Company Number: FR-BAYER-200923090GPV

PATIENT
  Age: 42 Year
  Sex: Male

DRUGS (1)
  1. BETAFERON [Suspect]
     Indication: MULTIPLE SCLEROSIS
     Route: 058
     Dates: start: 20071201, end: 20080401

REACTIONS (7)
  - CONDITION AGGRAVATED [None]
  - CYANOSIS [None]
  - EXTREMITY NECROSIS [None]
  - FREEZING PHENOMENON [None]
  - HYPERTHERMIA [None]
  - RAYNAUD'S PHENOMENON [None]
  - VASCULITIS [None]
